FAERS Safety Report 10385317 (Version 1)
Quarter: 2014Q3

REPORT INFORMATION
  Report Type: Spontaneous
  Country: GB (occurrence: None)
  Receive Date: 20140812
  Receipt Date: 20140812
  Transmission Date: 20150326
  Serious: Yes (Hospitalization)
  Sender: FDA-Public Use
  Company Number: AUR-APL-2014-08358

PATIENT
  Age: 91 Year
  Sex: Female

DRUGS (14)
  1. ASPIRIN (ACETYLSALICYLIC ACID) [Concomitant]
     Active Substance: ASPIRIN
  2. CLOPIDOGREL [Concomitant]
     Active Substance: CLOPIDOGREL BISULFATE
  3. SENNA [Suspect]
     Active Substance: SENNA LEAF\SENNOSIDES\SENNOSIDES A AND B
  4. DOCUSATE [Concomitant]
     Active Substance: DOCUSATE
  5. PERINDOPRIL [Suspect]
     Active Substance: PERINDOPRIL
     Indication: PRODUCT USED FOR UNKNOWN INDICATION
     Dosage: 8MG, ONCE A DAY, ORAL
     Route: 048
     Dates: end: 20140722
  6. BISOPROLOL [Concomitant]
     Active Substance: BISOPROLOL
  7. SPIRONOLACTONE. [Suspect]
     Active Substance: SPIRONOLACTONE
     Indication: PRODUCT USED FOR UNKNOWN INDICATION
     Route: 048
     Dates: start: 20140703, end: 20140722
  8. ALLOPURINOL. [Concomitant]
     Active Substance: ALLOPURINOL
  9. CODEINE [Concomitant]
     Active Substance: CODEINE
  10. TRIMETHOPRIM. [Suspect]
     Active Substance: TRIMETHOPRIM
     Indication: URINARY TRACT INFECTION
     Dosage: 200MG TWO TIMES A DAY, ORAL
     Route: 048
     Dates: start: 20140717, end: 20140722
  11. SOLIFENACIN [Suspect]
     Active Substance: SOLIFENACIN
     Indication: PRODUCT USED FOR UNKNOWN INDICATION
     Dosage: 5MG, ONCE A DAY, ORAL
     Route: 048
     Dates: end: 20140722
  12. COLECALCIFEROL [Concomitant]
     Active Substance: CHOLECALCIFEROL
  13. CYCLIZINE [Concomitant]
     Active Substance: CYCLIZINE
  14. PARACETAMOL [Concomitant]
     Active Substance: ACETAMINOPHEN

REACTIONS (1)
  - Renal failure acute [None]

NARRATIVE: CASE EVENT DATE: 20140722
